FAERS Safety Report 20682014 (Version 1)
Quarter: 2022Q2

REPORT INFORMATION
  Report Type: Other
  Country: FR (occurrence: None)
  Receive Date: 20220407
  Receipt Date: 20220407
  Transmission Date: 20220721
  Serious: Yes (Other)
  Sender: FDA-Public Use
  Company Number: FR-ROCHE-2232307

PATIENT
  Age: 49 Year
  Sex: Female

DRUGS (6)
  1. RITUXIMAB [Suspect]
     Active Substance: RITUXIMAB
     Indication: Autoimmune haemolytic anaemia
     Route: 042
     Dates: start: 2003
  2. AZATHIOPRINE [Concomitant]
     Active Substance: AZATHIOPRINE
  3. CYCLOPHOSPHAMIDE [Concomitant]
     Active Substance: CYCLOPHOSPHAMIDE
     Route: 042
  4. MYCOPHENOLATE MOFETIL [Concomitant]
     Active Substance: MYCOPHENOLATE MOFETIL
  5. PREDNISONE [Concomitant]
     Active Substance: PREDNISONE
     Dosage: TAPERED UNDER 15 MG/DAY AND 5 MG/DAY 7 MONTHS AFTER THE LAST INFUSION
     Route: 048
  6. OFATUMUMAB [Concomitant]
     Active Substance: OFATUMUMAB
     Dosage: FOUR CYCLES 300 MG+4X1000 MG
     Route: 042

REACTIONS (2)
  - Serum sickness [Recovered/Resolved]
  - Off label use [Unknown]
